FAERS Safety Report 25432773 (Version 2)
Quarter: 2025Q2

REPORT INFORMATION
  Report Type: Report from Study
  Country: MX (occurrence: MX)
  Receive Date: 20250613
  Receipt Date: 20250624
  Transmission Date: 20250717
  Serious: Yes (Hospitalization)
  Sender: ALEXION PHARMACEUTICALS
  Company Number: MX-AstraZeneca-CH-00889601A

PATIENT
  Age: 78 Year
  Weight: 85 kg

DRUGS (11)
  1. BENRALIZUMAB [Suspect]
     Active Substance: BENRALIZUMAB
     Indication: Chronic obstructive pulmonary disease
     Dosage: 1 DOSAGE FORM, Q4W
  2. TEZSPIRE [Suspect]
     Active Substance: TEZEPELUMAB-EKKO
     Indication: Pneumothorax
     Dosage: 1 DOSAGE FORM, Q4W
  3. TEZSPIRE [Suspect]
     Active Substance: TEZEPELUMAB-EKKO
     Indication: Chronic obstructive pulmonary disease
  4. TRELEGY ELLIPTA [Concomitant]
     Active Substance: FLUTICASONE FUROATE\UMECLIDINIUM BROMIDE\VILANTEROL TRIFENATATE
     Indication: Chronic obstructive pulmonary disease
     Dosage: 2 DOSAGE FORM, QD
  5. VENTOLIN [Concomitant]
     Active Substance: ALBUTEROL SULFATE
     Indication: Chronic obstructive pulmonary disease
     Dosage: 12 DOSAGE FORM, QD
  6. BECLOMETHASONE [Concomitant]
     Active Substance: BECLOMETHASONE
     Indication: Nasal dryness
     Dosage: 2 DOSAGE FORM, QD
  7. Montaclar [Concomitant]
     Indication: Chronic obstructive pulmonary disease
     Dosage: 1 DOSAGE FORM, QD
  8. Esoxx one [Concomitant]
     Indication: Gastrointestinal disorder prophylaxis
     Dosage: 1 DOSAGE FORM, PC- AFTER MEALS
  9. MICARDIS [Concomitant]
     Active Substance: TELMISARTAN
     Indication: Prophylaxis
     Dosage: 80 MILLIGRAM, EVERY MORNING
  10. ASPIRIN [Concomitant]
     Active Substance: ASPIRIN
     Indication: Prophylaxis
     Dosage: 100 MILLIGRAM, QD
  11. ROSUVASTATIN [Concomitant]
     Active Substance: ROSUVASTATIN
     Indication: Prophylaxis
     Dosage: 10 MILLIGRAM, QD

REACTIONS (5)
  - Cardiac disorder [Unknown]
  - Disease progression [Unknown]
  - General physical health deterioration [Unknown]
  - Insurance issue [Unknown]
  - Off label use [Not Recovered/Not Resolved]
